FAERS Safety Report 11421236 (Version 1)
Quarter: 2015Q3

REPORT INFORMATION
  Report Type: Spontaneous
  Country: US (occurrence: US)
  Receive Date: 20150826
  Receipt Date: 20150826
  Transmission Date: 20151125
  Serious: Yes (Other)
  Sender: FDA-Public Use
  Company Number: US-CELGENEUS-USA-2015084725

PATIENT
  Sex: Male
  Weight: 124.4 kg

DRUGS (1)
  1. REVLIMID [Suspect]
     Active Substance: LENALIDOMIDE
     Indication: PLASMA CELL MYELOMA
     Dosage: 15 MILLIGRAM
     Route: 048
     Dates: start: 201404

REACTIONS (5)
  - Dizziness [Recovered/Resolved]
  - Weight decreased [Recovered/Resolved]
  - Contusion [Unknown]
  - Hallucination [Unknown]
  - Nightmare [Recovered/Resolved]
